FAERS Safety Report 9998988 (Version 1)
Quarter: 2014Q1

REPORT INFORMATION
  Report Type: Spontaneous
  Country: US (occurrence: US)
  Receive Date: 20140312
  Receipt Date: 20140312
  Transmission Date: 20141002
  Serious: Yes (Other)
  Sender: FDA-Public Use
  Company Number: US-BEH-2014040459

PATIENT
  Sex: Female

DRUGS (1)
  1. BERINERT [Suspect]

REACTIONS (8)
  - Eye swelling [Unknown]
  - Vomiting [Unknown]
  - Lip pain [Unknown]
  - Pain in extremity [Unknown]
  - Genital pain [Unknown]
  - Lip swelling [Unknown]
  - Local swelling [Unknown]
  - Genital swelling [Unknown]
